FAERS Safety Report 25157585 (Version 1)
Quarter: 2025Q2

REPORT INFORMATION
  Report Type: Spontaneous
  Country: US (occurrence: US)
  Receive Date: 20250403
  Receipt Date: 20250403
  Transmission Date: 20250717
  Serious: No
  Sender: MERCK SHARP AND DOHME
  Company Number: US-009507513-2264336

PATIENT
  Age: 60 Year
  Sex: Female

DRUGS (5)
  1. PEMBROLIZUMAB [Suspect]
     Active Substance: PEMBROLIZUMAB
     Indication: Ovarian granulosa cell tumour
  2. TIRZEPATIDE [Concomitant]
     Active Substance: TIRZEPATIDE
  3. CARBOPLATIN [Concomitant]
     Active Substance: CARBOPLATIN
     Indication: Ovarian granulosa cell tumour
  4. PACLITAXEL [Concomitant]
     Active Substance: PACLITAXEL
     Indication: Ovarian granulosa cell tumour
  5. PEMETREXED [Concomitant]
     Active Substance: PEMETREXED
     Indication: Ovarian granulosa cell tumour

REACTIONS (1)
  - Product use in unapproved indication [Unknown]
